FAERS Safety Report 8172952-8 (Version None)
Quarter: 2012Q1

REPORT INFORMATION
  Report Type: 
  Country: None (occurrence: None)
  Receive Date: 20120229
  Receipt Date: 20120222
  Transmission Date: 20120608
  Serious: Yes (Other)
  Sender: FDA-Public Use
  Company Number: US-CELGENEUS-163-21880-12012616

PATIENT
  Sex: Female

DRUGS (4)
  1. REVLIMID [Suspect]
     Dosage: 25 MILLIGRAM
     Route: 048
     Dates: start: 20111001, end: 20120125
  2. DEXAMETHASONE [Concomitant]
     Route: 048
     Dates: start: 20110101
  3. VELCADE [Concomitant]
     Route: 065
     Dates: start: 20110101
  4. REVLIMID [Suspect]
     Indication: MULTIPLE MYELOMA
     Dosage: 15 MILLIGRAM
     Route: 048
     Dates: start: 20101101, end: 20110101

REACTIONS (3)
  - MULTIPLE MYELOMA [None]
  - DRUG INEFFECTIVE [None]
  - NEUROPATHY PERIPHERAL [None]
